FAERS Safety Report 14929808 (Version 1)
Quarter: 2018Q2

REPORT INFORMATION
  Report Type: Report from Study
  Country: US (occurrence: US)
  Receive Date: 20180523
  Receipt Date: 20180523
  Transmission Date: 20180711
  Serious: Yes (Death, Hospitalization)
  Sender: FDA-Public Use
  Company Number: US-PFIZER INC-2018206474

PATIENT
  Sex: Male

DRUGS (3)
  1. ISUPREL [Suspect]
     Active Substance: ISOPROTERENOL HYDROCHLORIDE
     Indication: ADAMS-STOKES SYNDROME
     Dosage: 0.2 MG, UNK (0.2 MG. TO EACH CUBIC CENTIMETER)
     Route: 058
  2. EPINEPHRINE. [Suspect]
     Active Substance: EPINEPHRINE
     Dosage: 1 ML, UNK
     Route: 058
  3. ISUPREL [Suspect]
     Active Substance: ISOPROTERENOL HYDROCHLORIDE
     Dosage: 10 MG TABLETS
     Route: 060

REACTIONS (1)
  - Pulmonary oedema [Fatal]
